FAERS Safety Report 9726307 (Version 2)
Quarter: 2014Q1

REPORT INFORMATION
  Report Type: Spontaneous
  Country: JP (occurrence: JP)
  Receive Date: 20131203
  Receipt Date: 20140124
  Transmission Date: 20141002
  Serious: Yes (Hospitalization)
  Sender: FDA-Public Use
  Company Number: JP-AMGEN-JPNSP2013084555

PATIENT
  Age: 47 Year
  Sex: Male

DRUGS (1)
  1. GRAN [Suspect]
     Indication: PANCYTOPENIA
     Dosage: UNK
     Route: 065

REACTIONS (1)
  - Neutrophilic panniculitis [Recovering/Resolving]
